FAERS Safety Report 5930751-9 (Version None)
Quarter: 2008Q4

REPORT INFORMATION
  Report Type: 
  Country: None (occurrence: None)
  Receive Date: 20081022
  Receipt Date: 20081006
  Transmission Date: 20090506
  Serious: Yes (Hospitalization)
  Sender: FDA-Public Use
  Company Number: DSA_32496_2008

PATIENT
  Sex: Male

DRUGS (2)
  1. LORAZEPAM [Suspect]
     Indication: DRUG USE FOR UNKNOWN INDICATION
     Dosage: (3 MG QD ORAL)
     Route: 048
     Dates: start: 20081004, end: 20081004
  2. SEROQUEL [Suspect]
     Indication: DRUG USE FOR UNKNOWN INDICATION
     Dosage: (300 MG QD ORAL)
     Route: 048
     Dates: start: 20081004, end: 20081004

REACTIONS (2)
  - COMA [None]
  - TACHYCARDIA [None]
